FAERS Safety Report 6276201-7 (Version None)
Quarter: 2009Q3

REPORT INFORMATION
  Report Type: 
  Country: None (occurrence: None)
  Receive Date: 20090722
  Receipt Date: 20090715
  Transmission Date: 20100115
  Serious: Yes (Death)
  Sender: FDA-Public Use
  Company Number: AU-BRISTOL-MYERS SQUIBB COMPANY-14706956

PATIENT
  Age: 64 Year
  Sex: Female

DRUGS (9)
  1. CARBIDOPA + LEVODOPA [Suspect]
     Dosage: CARBIDOPA + LEVODOPA CR TABS.
     Route: 048
     Dates: end: 20090306
  2. CARTIA XT [Concomitant]
  3. NITROGLYCERIN [Concomitant]
     Dates: end: 20090306
  4. NORVASC [Concomitant]
  5. OROXINE [Concomitant]
  6. ATENOLOL [Concomitant]
  7. PERMAX [Concomitant]
  8. PRAVACHOL [Concomitant]
  9. STALEVO 100 [Concomitant]

REACTIONS (7)
  - CHILLS [None]
  - DELIRIUM [None]
  - HYPOTENSION [None]
  - METABOLIC ACIDOSIS [None]
  - NEUROLEPTIC MALIGNANT SYNDROME [None]
  - ORGAN FAILURE [None]
  - PYREXIA [None]
